FAERS Safety Report 5211761-6 (Version None)
Quarter: 2007Q1

REPORT INFORMATION
  Report Type: 
  Country: None (occurrence: None)
  Receive Date: 20070118
  Receipt Date: 20061227
  Transmission Date: 20070707
  Serious: Yes (Other)
  Sender: FDA-Public Use
  Company Number: FR-BRISTOL-MYERS SQUIBB COMPANY-13581251

PATIENT
  Age: 50 Year
  Sex: Male

DRUGS (7)
  1. APROVEL [Suspect]
     Indication: HYPERTENSION
     Route: 048
     Dates: start: 20060911, end: 20060920
  2. RILMENIDINE [Concomitant]
  3. RAMIPRIL [Concomitant]
     Route: 048
  4. NEORAL [Concomitant]
  5. CELLCEPT [Concomitant]
  6. ACTRAPID [Concomitant]
  7. NOVORAPID [Concomitant]

REACTIONS (2)
  - BLOOD PRESSURE INCREASED [None]
  - RENAL IMPAIRMENT [None]
